FAERS Safety Report 8967295 (Version 1)
Quarter: 2012Q4

REPORT INFORMATION
  Report Type: 
  Country: US (occurrence: US)
  Receive Date: 20121214
  Receipt Date: 20121214
  Transmission Date: 20130627
  Serious: No
  Sender: FDA-Public Use
  Company Number: US-GLAXOSMITHKLINE-A0982584A

PATIENT
  Age: 84 Year
  Sex: Male

DRUGS (3)
  1. FLONASE [Suspect]
     Indication: RHINITIS ALLERGIC
     Route: 045
     Dates: start: 20120626
  2. COSOPT [Concomitant]
  3. XALATAN [Concomitant]

REACTIONS (2)
  - Productive cough [Unknown]
  - Chest pain [Unknown]
